FAERS Safety Report 6564475-4 (Version None)
Quarter: 2010Q1

REPORT INFORMATION
  Report Type: 
  Country: None (occurrence: None)
  Receive Date: 20100201
  Receipt Date: 20100108
  Transmission Date: 20100710
  Serious: Yes (Hospitalization, Other)
  Sender: FDA-Public Use
  Company Number: JP-SANOFI-AVENTIS-F01200900931

PATIENT
  Age: 85 Year
  Sex: Male
  Weight: 60 kg

DRUGS (10)
  1. CLOPIDOGREL BISULFATE [Suspect]
     Indication: ACUTE CORONARY SYNDROME
     Dosage: DOSE TEXT: MAINTENANCE DOSE
     Route: 048
     Dates: start: 20080625
  2. CLOPIDOGREL BISULFATE [Suspect]
     Indication: ANGINA UNSTABLE
     Dosage: DOSE TEXT: MAINTENANCE DOSE
     Route: 048
     Dates: start: 20080625
  3. ASPIRIN [Concomitant]
     Indication: ANGINA UNSTABLE
     Route: 048
  4. WARFARIN SODIUM [Concomitant]
     Indication: ANGINA UNSTABLE
     Route: 048
  5. RENIVACE [Concomitant]
     Route: 048
  6. DIGOXIN [Concomitant]
     Route: 048
  7. AMARYL [Concomitant]
     Route: 048
  8. VOGLIBOSE [Concomitant]
     Route: 048
  9. OMEPRAL [Concomitant]
     Indication: GASTRITIS
     Route: 048
  10. LIPITOR [Concomitant]
     Route: 048

REACTIONS (1)
  - IN-STENT CORONARY ARTERY RESTENOSIS [None]
